FAERS Safety Report 25908921 (Version 1)
Quarter: 2025Q4

REPORT INFORMATION
  Report Type: Spontaneous
  Country: EU (occurrence: EU)
  Receive Date: 20251011
  Receipt Date: 20251011
  Transmission Date: 20260118
  Serious: Yes (Death, Other)
  Sender: JOHNSON AND JOHNSON
  Company Number: EU-AMGEN-NORSP2025195278

PATIENT
  Sex: Female

DRUGS (14)
  1. TOLODODEKIN ALFA [Suspect]
     Active Substance: TOLODODEKIN ALFA
     Indication: Plasma cell myeloma
     Dosage: UNK
     Route: 065
  2. TOLODODEKIN ALFA [Suspect]
     Active Substance: TOLODODEKIN ALFA
     Dosage: UNK UNK, QWK
     Route: 065
     Dates: start: 202211
  3. CARFILZOMIB [Suspect]
     Active Substance: CARFILZOMIB
     Indication: Plasma cell myeloma
     Dosage: UNK
     Route: 065
  4. CARFILZOMIB [Suspect]
     Active Substance: CARFILZOMIB
     Dosage: UNK
     Route: 065
     Dates: start: 2023
  5. DEXAMETHASONE [Suspect]
     Active Substance: DEXAMETHASONE
     Indication: Plasma cell myeloma
     Dosage: UNK
     Route: 065
  6. ETOPOSIDE [Suspect]
     Active Substance: ETOPOSIDE
     Indication: Plasma cell myeloma
     Dosage: 100 MILLIGRAM/SQ. METER, DAY 1- 4
     Route: 065
  7. PREDNISOLONE [Suspect]
     Active Substance: PREDNISOLONE
     Indication: Plasma cell myeloma
     Dosage: 60 MILLIGRAM/SQ. METER, DAY 1-5
     Route: 065
  8. VINCRISTINE [Suspect]
     Active Substance: VINCRISTINE
     Indication: Plasma cell myeloma
     Dosage: 0.8 MILLIGRAM/SQ. METER, DAY 1-4
     Route: 065
  9. DOXORUBICIN [Suspect]
     Active Substance: DOXORUBICIN
     Indication: Plasma cell myeloma
     Dosage: 20 MILLIGRAM/SQ. METER, DAY 1-5
     Route: 065
  10. CYCLOPHOSPHAMIDE [Suspect]
     Active Substance: CYCLOPHOSPHAMIDE
     Indication: Plasma cell myeloma
     Dosage: 750 MILLIGRAM/SQ. METER, DAY 5
     Route: 065
  11. VINBLASTINE [Suspect]
     Active Substance: VINBLASTINE
     Indication: Plasma cell myeloma
     Dosage: UNK UNK, Q4WK
     Route: 065
     Dates: start: 202301
  12. MERCAPTOPURINE [Suspect]
     Active Substance: MERCAPTOPURINE
     Indication: Plasma cell myeloma
     Dosage: UNK
     Route: 048
     Dates: start: 202301
  13. METHOTREXATE [Suspect]
     Active Substance: METHOTREXATE
     Indication: Plasma cell myeloma
     Dosage: UNK
     Route: 048
     Dates: start: 202301
  14. BELANTAMAB MAFODOTIN [Suspect]
     Active Substance: BELANTAMAB MAFODOTIN
     Indication: Plasma cell myeloma
     Dosage: UNK
     Route: 065
     Dates: start: 202305

REACTIONS (2)
  - Febrile neutropenia [Fatal]
  - Plasma cell myeloma [Not Recovered/Not Resolved]

NARRATIVE: CASE EVENT DATE: 20220101
